FAERS Safety Report 17799696 (Version 1)
Quarter: 2020Q2

REPORT INFORMATION
  Report Type: Spontaneous
  Country: DE (occurrence: DE)
  Receive Date: 20200518
  Receipt Date: 20200518
  Transmission Date: 20200714
  Serious: Yes (Hospitalization)
  Sender: FDA-Public Use
  Company Number: DE-MYLANLABS-2020M1048238

PATIENT
  Age: 75 Year
  Sex: Female
  Weight: 150 kg

DRUGS (13)
  1. AMLODIPIN                          /00972401/ [Concomitant]
     Active Substance: AMLODIPINE BESYLATE
     Dosage: 5 MG, 1-0-0-0
  2. LIXIANA [Concomitant]
     Active Substance: EDOXABAN TOSYLATE
     Dosage: 30 MG, 1-0-0-0
  3. ATORVASTATIN [Concomitant]
     Active Substance: ATORVASTATIN
     Dosage: 40 MG, 0-0-1-0
  4. TORASEMID AL [Concomitant]
     Active Substance: TORSEMIDE
     Dosage: 10 MG, 2-0-0-0
  5. PANTOPRAZOL                        /01263201/ [Concomitant]
     Active Substance: PANTOPRAZOLE
     Dosage: 40 MG, 1-0-0-0
  6. VIGANTOL                           /00318501/ [Concomitant]
     Active Substance: CHOLECALCIFEROL
     Dosage: 1000 IE, 1-0-0-0
  7. NOVALGIN (METAMIZOLE SODIUM) [Concomitant]
     Active Substance: METAMIZOLE SODIUM
     Dosage: BEDARF
  8. TILIDIN AL COMP [Concomitant]
     Active Substance: NALOXONE HYDROCHLORIDE\TILIDINE HYDROCHLORIDE
     Dosage: 50|4 MG, 1-0-1-0
  9. BISOPROLOL [Suspect]
     Active Substance: BISOPROLOL
     Indication: PRODUCT USED FOR UNKNOWN INDICATION
     Dosage: 5 MG, 1-0-1-0
     Route: 065
  10. IMODIUM AKUT [Concomitant]
     Active Substance: LOPERAMIDE
     Dosage: BEDARF
  11. ZOPICLON [Concomitant]
     Active Substance: ZOPICLONE
     Dosage: BEDARF
  12. TAVOR (LORAZEPAM) [Concomitant]
     Active Substance: LORAZEPAM
     Dosage: 1 MG, BEDARF
  13. ENTRESTO [Concomitant]
     Active Substance: SACUBITRIL\VALSARTAN
     Dosage: 24|26 MG, 1-0-1-0

REACTIONS (9)
  - Skin ulcer [Unknown]
  - Wound [Unknown]
  - Musculoskeletal pain [Unknown]
  - Localised infection [Unknown]
  - Weight increased [Unknown]
  - Atrial flutter [Unknown]
  - Oedema peripheral [Unknown]
  - Heart rate increased [Unknown]
  - Blood pressure increased [Unknown]
